FAERS Safety Report 5024275-3 (Version None)
Quarter: 2006Q2

REPORT INFORMATION
  Report Type: 
  Country: None (occurrence: None)
  Receive Date: 20060426
  Receipt Date: 20060324
  Transmission Date: 20061013
  Serious: Yes (Other)
  Sender: FDA-Public Use
  Company Number: 2006043163

PATIENT
  Sex: Male

DRUGS (2)
  1. LYRICA [Suspect]
     Indication: HEADACHE
     Dosage: 150 MG (75 MG, 2 IN 1 D)
     Dates: start: 20060101
  2. LYRICA [Suspect]
     Indication: MIGRAINE
     Dosage: 150 MG (75 MG, 2 IN 1 D)
     Dates: start: 20060101

REACTIONS (3)
  - DIZZINESS [None]
  - DRUG EFFECT DECREASED [None]
  - VISION BLURRED [None]
